FAERS Safety Report 4411148-X (Version None)
Quarter: 2004Q2

REPORT INFORMATION
  Report Type: 
  Country: None (occurrence: None)
  Receive Date: 20040630
  Receipt Date: 20040518
  Transmission Date: 20050107
  Serious: No
  Sender: FDA-Public Use
  Company Number: 03P-163-0243402-00

PATIENT
  Age: 48 Year
  Sex: Female

DRUGS (6)
  1. HUMIRA [Suspect]
     Indication: RHEUMATOID ARTHRITIS
     Dosage: 40 MG, 1 IN 2 WK, SUBCUTANEOUS
     Route: 058
     Dates: start: 20030201
  2. GABAPENTIN [Suspect]
     Indication: PAIN
     Dosage: PER ORAL
     Route: 048
     Dates: start: 20030201
  3. PREDNISONE TAB [Concomitant]
  4. ESOMEPRAZOLE [Concomitant]
  5. OXYCODONE HCL [Concomitant]
  6. CLONAZEPAM [Concomitant]

REACTIONS (4)
  - ARTHRALGIA [None]
  - HYPOTRICHOSIS [None]
  - PHOTOPSIA [None]
  - VISUAL DISTURBANCE [None]
